FAERS Safety Report 19179466 (Version 2)
Quarter: 2021Q2

REPORT INFORMATION
  Report Type: Report from Study
  Country: US (occurrence: US)
  Receive Date: 20210426
  Receipt Date: 20210429
  Transmission Date: 20210717
  Serious: Yes (Other)
  Sender: FDA-Public Use
  Company Number: US-GLAXOSMITHKLINE-US2021AMR058091

PATIENT
  Sex: Female

DRUGS (2)
  1. NIRAPARIB [Suspect]
     Active Substance: NIRAPARIB
     Dosage: 300 MG, QD
     Dates: start: 20210401
  2. NIRAPARIB [Suspect]
     Active Substance: NIRAPARIB
     Indication: OVARIAN CANCER
     Dosage: 300 MG, QD
     Dates: start: 202012

REACTIONS (9)
  - Carbohydrate antigen 125 increased [Unknown]
  - Nausea [Recovered/Resolved]
  - Vomiting [Recovered/Resolved]
  - Heart rate increased [Unknown]
  - Drug ineffective [Unknown]
  - Blood pressure increased [Unknown]
  - Fatigue [Unknown]
  - Constipation [Unknown]
  - Renal impairment [Unknown]
